FAERS Safety Report 5288937-5 (Version None)
Quarter: 2007Q2

REPORT INFORMATION
  Report Type: 
  Country: None (occurrence: None)
  Receive Date: 20070405
  Receipt Date: 20070326
  Transmission Date: 20071010
  Serious: Yes (Hospitalization, Other)
  Sender: FDA-Public Use
  Company Number: PFIZER INC-2006138794

PATIENT
  Sex: Male
  Weight: 72.6 kg

DRUGS (6)
  1. CELEBREX [Suspect]
     Indication: ARTHRITIS
  2. CELEBREX [Suspect]
     Indication: BACK PAIN
  3. CELEBREX [Suspect]
     Indication: NECK INJURY
  4. CELEBREX [Suspect]
     Indication: JOINT INJURY
  5. BEXTRA [Suspect]
     Indication: PAIN MANAGEMENT
     Dates: start: 20030729
  6. BEXTRA [Suspect]
     Indication: BACK PAIN

REACTIONS (4)
  - CEREBROVASCULAR ACCIDENT [None]
  - CONVULSION [None]
  - ISCHAEMIA [None]
  - MYOCARDIAL INFARCTION [None]
